FAERS Safety Report 9953316 (Version 3)
Quarter: 2014Q1

REPORT INFORMATION
  Report Type: Report from Study
  Country: TW (occurrence: TW)
  Receive Date: 20140304
  Receipt Date: 20140312
  Transmission Date: 20141002
  Serious: Yes (Hospitalization, Other)
  Sender: FDA-Public Use
  Company Number: PHHY2014TW022857

PATIENT
  Age: 44 Year
  Sex: Female
  Weight: 51 kg

DRUGS (1)
  1. GILENYA [Suspect]
     Indication: MULTIPLE SCLEROSIS
     Dosage: 0.5 MG, QD
     Route: 048
     Dates: start: 20120823

REACTIONS (5)
  - Abdominal distension [Recovered/Resolved]
  - Central nervous system lesion [Recovering/Resolving]
  - Back pain [Recovered/Resolved]
  - Phlebitis [Recovering/Resolving]
  - Pruritus [Recovered/Resolved]
